FAERS Safety Report 8525371-6 (Version None)
Quarter: 2012Q3

REPORT INFORMATION
  Report Type: 
  Country: None (occurrence: None)
  Receive Date: 20120720
  Receipt Date: 20120713
  Transmission Date: 20120928
  Serious: Yes (Hospitalization)
  Sender: FDA-Public Use
  Company Number: FR-PFIZER INC-2012168634

PATIENT
  Age: 89 Year
  Sex: Male

DRUGS (4)
  1. TERCIAN [Suspect]
     Indication: DEPRESSION
  2. ZITHROMAX [Suspect]
     Indication: BRONCHOPNEUMOPATHY
     Dosage: 250 MG, 2X/DAY
     Route: 048
     Dates: start: 20120316, end: 20120412
  3. TERCIAN [Suspect]
     Indication: ANXIETY
     Dosage: 2 GTT, 3X/DAY
     Route: 048
     Dates: start: 20120327, end: 20120412
  4. ASPIRIN [Suspect]
     Indication: THROMBOSIS PROPHYLAXIS
     Dosage: 75 MG, 1X/DAY
     Route: 048
     Dates: start: 20120101, end: 20120412

REACTIONS (1)
  - VASCULAR PURPURA [None]
